FAERS Safety Report 7028582-4 (Version None)
Quarter: 2010Q4

REPORT INFORMATION
  Report Type: 
  Country: None (occurrence: None)
  Receive Date: 20101005
  Receipt Date: 20100921
  Transmission Date: 20110411
  Serious: Yes (Hospitalization)
  Sender: FDA-Public Use
  Company Number: JP-GENENTECH-304922

PATIENT
  Sex: Male

DRUGS (5)
  1. RANIBIZUMAB [Suspect]
     Indication: MACULAR DEGENERATION
     Dosage: 0.05 ML, UNK
     Route: 031
     Dates: start: 20090424
  2. CRAVIT [Concomitant]
     Indication: PRODUCT USED FOR UNKNOWN INDICATION
     Dosage: UNK
     Dates: start: 20090501, end: 20090601
  3. CRAVIT [Concomitant]
     Dosage: UNK
     Dates: start: 20090424, end: 20090628
  4. HYALEIN [Concomitant]
     Indication: PRODUCT USED FOR UNKNOWN INDICATION
  5. FLOMOX [Concomitant]
     Indication: PRODUCT USED FOR UNKNOWN INDICATION
     Dosage: UNK
     Dates: start: 20091120, end: 20091122

REACTIONS (1)
  - CEREBRAL INFARCTION [None]
